FAERS Safety Report 21215135 (Version 1)
Quarter: 2022Q3

REPORT INFORMATION
  Report Type: Spontaneous
  Country: NL (occurrence: NL)
  Receive Date: 20220816
  Receipt Date: 20220816
  Transmission Date: 20221026
  Serious: Yes (Life-Threatening)
  Sender: FDA-Public Use
  Company Number: None

PATIENT
  Age: 5 Year
  Sex: Male
  Weight: 15.9 kg

DRUGS (11)
  1. REMICADE [Suspect]
     Active Substance: INFLIXIMAB
     Indication: Pneumonitis
     Dosage: 1 INJECTIE PER 4 WEKEN
     Route: 041
     Dates: start: 20220603
  2. CO-TRIMOXAZOLE - ORAL SUSPENSION [Concomitant]
     Dosage: SUSPENSIE, 8/40 MG/ML (MILLIGRAM PER MILLILITER)
     Route: 048
  3. Paracetamol Liquid Cap Roter 500 MG [Concomitant]
     Dosage: CAPSULE, 500 MG (MILLIGRAM)
  4. Midazolam 1 mg/ml Fresenius oplossing voor injectie [Concomitant]
     Dosage: INJECTIEVLOEISTOF, 1 MG/ML (MILLIGRAM PER MILLILITER)
  5. MORPHINE HYDROCHLORIDE TRIHYDRATE 1mg/mL - SOLUTION FOR INFUSION [Concomitant]
     Dosage: INFUSIEVLOEISTOF, 1 MG/ML (MILLIGRAM PER MILLILITER)
  6. Acetylsalicylzuur Neuro 30 MG DISPERGEERBARE TABLETTEN [Concomitant]
     Dosage: TABLET, 30 MG (MILLIGRAM)
  7. ESOMEPRAZOLE 10 mg [Concomitant]
     Dosage: ZAKJE (GRANULAAT), 10 MG (MILLIGRAM)
  8. MIDAZOLAM 1mg/mL - SOLUTION FOR INFUSION [Concomitant]
     Dosage: INFUSIEVLOEISTOF, 1 MG/ML (MILLIGRAM PER MILLILITER)
  9. MELATONIN - CAPSULE [Concomitant]
     Dosage: CAPSULE, 1 MG (MILLIGRAM)
  10. CaD orange 500/440 BRUISGRANULAAT [Concomitant]
     Dosage: 500MG/440IE
  11. PHENPROCOUMON [Concomitant]
     Active Substance: PHENPROCOUMON
     Dosage: SUSPENSIE, 1 MG/ML (MILLIGRAM PER MILLILITER)

REACTIONS (2)
  - Hypoglycaemia [Unknown]
  - Off label use [Unknown]

NARRATIVE: CASE EVENT DATE: 20220604
